FAERS Safety Report 9393066 (Version 1)
Quarter: 2013Q3

REPORT INFORMATION
  Report Type: Spontaneous
  Country: US (occurrence: US)
  Receive Date: 20130710
  Receipt Date: 20130710
  Transmission Date: 20140515
  Serious: No
  Sender: FDA-Public Use
  Company Number: US-009507513-1304USA000890

PATIENT
  Age: 78 Year
  Sex: Female

DRUGS (1)
  1. CLARITIN REDITABS [Suspect]
     Indication: PRURITUS
     Dosage: 10 MG, QD
     Route: 048
     Dates: start: 20130327

REACTIONS (4)
  - Insomnia [Recovered/Resolved]
  - Somnolence [Unknown]
  - Drug ineffective for unapproved indication [Unknown]
  - Off label use [Unknown]
